FAERS Safety Report 16980407 (Version 1)
Quarter: 2019Q4

REPORT INFORMATION
  Report Type: Spontaneous
  Country: JP (occurrence: JP)
  Receive Date: 20191031
  Receipt Date: 20191031
  Transmission Date: 20200122
  Serious: Yes (Death)
  Sender: FDA-Public Use
  Company Number: JP-ELI_LILLY_AND_COMPANY-JP201910012528

PATIENT
  Sex: Male
  Weight: 49 kg

DRUGS (2)
  1. CYRAMZA [Suspect]
     Active Substance: RAMUCIRUMAB
     Indication: GASTRIC CANCER RECURRENT
     Dosage: 400 MG
     Route: 041
     Dates: start: 20181023, end: 20190514
  2. TAXOL [Concomitant]
     Active Substance: PACLITAXEL
     Indication: GASTRIC CANCER RECURRENT
     Dosage: 60 MG
     Route: 041
     Dates: start: 20181023, end: 20190514

REACTIONS (1)
  - Subarachnoid haemorrhage [Fatal]
